FAERS Safety Report 7106797-4 (Version None)
Quarter: 2010Q4

REPORT INFORMATION
  Report Type: 
  Country: None (occurrence: None)
  Receive Date: 20101116
  Receipt Date: 20101020
  Transmission Date: 20110411
  Serious: No
  Sender: FDA-Public Use
  Company Number: US-ABBOTT-10P-163-0680396-00

PATIENT
  Sex: Male

DRUGS (4)
  1. SIMCOR [Suspect]
     Indication: CORONARY ARTERY DISEASE
     Dosage: 1000MG/20MG, ONCE DAILY
     Route: 048
     Dates: start: 20100401, end: 20101013
  2. SIMCOR [Suspect]
     Dosage: 2000MG/40MG, ONCE DAILY
     Route: 048
     Dates: start: 20101014, end: 20101014
  3. SIMCOR [Suspect]
     Dosage: 1000MG/20MG, ONCE DAILY
     Route: 048
     Dates: start: 20101018, end: 20101020
  4. ASPIRIN [Concomitant]
     Indication: PRODUCT USED FOR UNKNOWN INDICATION
     Dosage: WITH SIMCOR

REACTIONS (4)
  - ERYTHEMA [None]
  - FLUSHING [None]
  - FORMICATION [None]
  - PRURITUS [None]
